FAERS Safety Report 9185856 (Version 1)
Quarter: 2013Q1

REPORT INFORMATION
  Report Type: Spontaneous
  Country: DE (occurrence: DE)
  Receive Date: 20130325
  Receipt Date: 20130325
  Transmission Date: 20140127
  Serious: Yes (Other)
  Sender: FDA-Public Use
  Company Number: DE-BRISTOL-MYERS SQUIBB COMPANY-17472291

PATIENT
  Age: 48 Year
  Sex: Male
  Weight: 65 kg

DRUGS (3)
  1. ENTECAVIR [Suspect]
     Indication: HEPATITIS B
     Dates: start: 200810
  2. EFAVIRENZ [Suspect]
     Indication: HIV INFECTION
     Dosage: OCT-2008
     Dates: start: 200307
  3. KIVEXA [Suspect]
     Indication: HIV INFECTION
     Dosage: OCT-2008
     Dates: start: 200307

REACTIONS (4)
  - Virologic failure [Unknown]
  - Transaminases increased [Unknown]
  - Osteoporosis [Unknown]
  - Hepatitis C [Unknown]
